FAERS Safety Report 5116564-9 (Version None)
Quarter: 2006Q3

REPORT INFORMATION
  Report Type: 
  Country: None (occurrence: None)
  Receive Date: 20060928
  Receipt Date: 20060822
  Transmission Date: 20061208
  Serious: Yes (Hospitalization)
  Sender: FDA-Public Use
  Company Number: US-BRISTOL-MYERS SQUIBB COMPANY-13484985

PATIENT
  Age: 68 Year
  Sex: Male

DRUGS (5)
  1. CARBOPLATIN [Suspect]
     Indication: NON-SMALL CELL LUNG CANCER
     Route: 042
     Dates: start: 20060814, end: 20060814
  2. TAXOTERE [Suspect]
     Indication: NON-SMALL CELL LUNG CANCER
     Route: 042
     Dates: start: 20060814, end: 20060814
  3. LIPITOR [Concomitant]
     Dates: start: 20060401
  4. HYDROCHLOROTHIAZDE TAB [Concomitant]
     Dates: start: 20040101
  5. LISINOPRIL [Concomitant]
     Dates: start: 20040101

REACTIONS (1)
  - DEHYDRATION [None]
